FAERS Safety Report 10479274 (Version 2)
Quarter: 2014Q4

REPORT INFORMATION
  Report Type: Spontaneous
  Country: US (occurrence: US)
  Receive Date: 20140926
  Receipt Date: 20141110
  Transmission Date: 20150528
  Serious: No
  Sender: FDA-Public Use
  Company Number: US-ELI_LILLY_AND_COMPANY-US201409001250

PATIENT
  Age: 60 Year
  Sex: Female
  Weight: 57.14 kg

DRUGS (2)
  1. CYMBALTA [Suspect]
     Active Substance: DULOXETINE HYDROCHLORIDE
     Indication: DEPRESSION
     Dosage: 60 MG, QD
     Route: 065
     Dates: start: 200307, end: 20140912
  2. CYMBALTA [Suspect]
     Active Substance: DULOXETINE HYDROCHLORIDE
     Dosage: 60 MG, QD
     Route: 065
     Dates: start: 20140922

REACTIONS (5)
  - Withdrawal syndrome [Unknown]
  - Vomiting [Unknown]
  - Aggression [Unknown]
  - Depressed mood [Unknown]
  - Nausea [Unknown]
